FAERS Safety Report 17582790 (Version 1)
Quarter: 2020Q1

REPORT INFORMATION
  Report Type: Spontaneous
  Country: US (occurrence: US)
  Receive Date: 20200325
  Receipt Date: 20200325
  Transmission Date: 20200409
  Serious: Yes (Death, Life-Threatening, Hospitalization)
  Sender: FDA-Public Use
  Company Number: US-FRESENIUS KABI-FK202003047

PATIENT
  Age: 74 Year
  Sex: Female
  Weight: 47.3 kg

DRUGS (59)
  1. CYCLOPHOSPHAMIDE. [Suspect]
     Active Substance: CYCLOPHOSPHAMIDE
     Indication: B-CELL DEPLETION THERAPY
     Route: 042
     Dates: start: 20191113, end: 20191115
  2. MAGNESIUM SULFATE. [Concomitant]
     Active Substance: MAGNESIUM SULFATE
     Route: 042
     Dates: start: 20191216, end: 20191216
  3. LORAZEPAM. [Concomitant]
     Active Substance: LORAZEPAM
     Route: 042
     Dates: start: 20191217, end: 20191217
  4. MAGNESIUM CHELATE [Concomitant]
     Active Substance: MAGNESIUM
     Dosage: 133 MG TABLET
     Route: 048
     Dates: start: 20191215, end: 20191215
  5. POTASSIUM CHLORIDE. [Concomitant]
     Active Substance: POTASSIUM CHLORIDE
     Indication: HYPOKALAEMIA
     Route: 042
     Dates: start: 20191213, end: 20191213
  6. POTASSIUM CHLORIDE. [Concomitant]
     Active Substance: POTASSIUM CHLORIDE
     Route: 042
     Dates: start: 20191212, end: 20191212
  7. ONDANSETRON [Concomitant]
     Active Substance: ONDANSETRON
     Indication: NAUSEA
     Route: 048
     Dates: start: 20191210, end: 20191218
  8. MICAFUNGIN SODIUM [Concomitant]
     Active Substance: MICAFUNGIN SODIUM
     Indication: ANTIFUNGAL PROPHYLAXIS
     Route: 042
     Dates: start: 20191212, end: 20191224
  9. OXYCODONE [Concomitant]
     Active Substance: OXYCODONE
     Indication: PAIN IN EXTREMITY
  10. LISOCABTAGENE MARALEUCEL. [Suspect]
     Active Substance: LISOCABTAGENE MARALEUCEL
     Indication: MANTLE CELL LYMPHOMA
     Dosage: 1.5^ 10*8 CAR +T CELLS
     Route: 042
     Dates: start: 20191118, end: 20191118
  11. LORAZEPAM. [Concomitant]
     Active Substance: LORAZEPAM
     Route: 042
     Dates: start: 20191215, end: 20191215
  12. POTASSIUM CHLORIDE. [Concomitant]
     Active Substance: POTASSIUM CHLORIDE
     Route: 042
     Dates: start: 20191216, end: 20191216
  13. ONDANSETRON [Concomitant]
     Active Substance: ONDANSETRON
     Indication: VOMITING
     Route: 042
     Dates: start: 20191209, end: 20191209
  14. ATOVAQUONE. [Concomitant]
     Active Substance: ATOVAQUONE
     Indication: ANTIFUNGAL PROPHYLAXIS
     Route: 048
     Dates: start: 20191202, end: 20191229
  15. FENTANYL. [Concomitant]
     Active Substance: FENTANYL
     Indication: BACK PAIN
     Dosage: 1 PATCH
     Route: 062
     Dates: start: 20191204, end: 20191213
  16. AMLODIPINE BESILATE [Concomitant]
     Active Substance: AMLODIPINE BESYLATE
     Indication: HYPERTENSION
     Route: 048
     Dates: start: 20191112, end: 20191225
  17. BUPROPION. [Concomitant]
     Active Substance: BUPROPION
     Indication: DEPRESSION
     Route: 048
  18. ACICLOVIR [Concomitant]
     Active Substance: ACYCLOVIR
     Indication: ANTIVIRAL PROPHYLAXIS
     Route: 048
     Dates: start: 20191112, end: 20191227
  19. PANTOPRAZOLE [Concomitant]
     Active Substance: PANTOPRAZOLE
     Route: 042
     Dates: start: 20191221, end: 20191229
  20. SUCRALFATE. [Concomitant]
     Active Substance: SUCRALFATE
     Indication: NAUSEA
     Route: 048
     Dates: start: 20191112, end: 20191205
  21. SUCRALFATE. [Concomitant]
     Active Substance: SUCRALFATE
     Route: 048
     Dates: start: 20191205, end: 20191209
  22. MAGNESIUM CHELATE [Concomitant]
     Active Substance: MAGNESIUM
     Indication: HYPOMAGNESAEMIA
     Dosage: 133 MG TABLET
     Route: 048
     Dates: start: 20191116, end: 20191209
  23. LOPERAMIDE [Concomitant]
     Active Substance: LOPERAMIDE
     Indication: PROPHYLAXIS AGAINST DIARRHOEA
     Route: 048
     Dates: start: 20191118, end: 20191209
  24. FILGRASTIM [Concomitant]
     Active Substance: FILGRASTIM
     Indication: NEUTROPENIA
     Route: 058
     Dates: start: 20181213, end: 20181228
  25. LORAZEPAM. [Concomitant]
     Active Substance: LORAZEPAM
     Route: 042
     Dates: start: 20191209, end: 20191209
  26. MAGNESIUM CHELATE [Concomitant]
     Active Substance: MAGNESIUM
     Dosage: 133 MG TABLET
     Route: 048
     Dates: start: 20191211, end: 20191211
  27. POTASSIUM CHLORIDE. [Concomitant]
     Active Substance: POTASSIUM CHLORIDE
     Route: 042
     Dates: start: 20191218, end: 20191218
  28. HYDROMORPHONE [Concomitant]
     Active Substance: HYDROMORPHONE
     Indication: PREMEDICATION
     Route: 042
     Dates: start: 20191217, end: 20191217
  29. CALCIUM CARBONATE. [Concomitant]
     Active Substance: CALCIUM CARBONATE
     Indication: HYPOCALCAEMIA
     Route: 048
     Dates: start: 20191218, end: 20191227
  30. COLECALCIFEROL [Concomitant]
     Active Substance: CHOLECALCIFEROL
     Indication: SUPPLEMENTATION THERAPY
     Route: 048
     Dates: start: 20191218, end: 20191227
  31. FLUDARABINE [Suspect]
     Active Substance: FLUDARABINE PHOSPHATE
     Indication: MANTLE CELL LYMPHOMA
     Route: 042
     Dates: start: 20191113, end: 20191115
  32. FLUDARABINE [Suspect]
     Active Substance: FLUDARABINE PHOSPHATE
     Indication: B-CELL DEPLETION THERAPY
  33. RAMELTEON [Concomitant]
     Active Substance: RAMELTEON
     Indication: INSOMNIA
     Route: 048
     Dates: start: 20191117, end: 20191209
  34. PROCHLORPERAZINE. [Concomitant]
     Active Substance: PROCHLORPERAZINE
     Route: 042
     Dates: start: 20191209, end: 20191209
  35. OXYCODONE [Concomitant]
     Active Substance: OXYCODONE
     Indication: ARTHRALGIA
     Dosage: 5 OR 10 MG
     Route: 048
     Dates: start: 20191209, end: 20191228
  36. OXYCODONE [Concomitant]
     Active Substance: OXYCODONE
     Indication: HEADACHE
  37. ESCITALOPRAM [Concomitant]
     Active Substance: ESCITALOPRAM OXALATE
     Indication: DEPRESSION
     Route: 048
     Dates: start: 20191113, end: 20191227
  38. MAGNESIUM SULFATE. [Concomitant]
     Active Substance: MAGNESIUM SULFATE
     Indication: HYPOMAGNESAEMIA
     Route: 042
     Dates: start: 20191212, end: 20191212
  39. MAGNESIUM SULFATE. [Concomitant]
     Active Substance: MAGNESIUM SULFATE
     Route: 042
     Dates: start: 20191218, end: 20191218
  40. MAGNESIUM SULFATE. [Concomitant]
     Active Substance: MAGNESIUM SULFATE
     Route: 042
     Dates: start: 20191218, end: 20191218
  41. LORAZEPAM. [Concomitant]
     Active Substance: LORAZEPAM
     Indication: NAUSEA
     Route: 048
     Dates: start: 20191205, end: 20191209
  42. LORAZEPAM. [Concomitant]
     Active Substance: LORAZEPAM
     Indication: PROPHYLAXIS
     Route: 048
     Dates: start: 20191214, end: 20191214
  43. PROCHLORPERAZINE. [Concomitant]
     Active Substance: PROCHLORPERAZINE
     Indication: NAUSEA
     Route: 048
     Dates: start: 20191205, end: 20191209
  44. PARACETAMOL [Concomitant]
     Active Substance: ACETAMINOPHEN
     Indication: PAIN IN EXTREMITY
  45. OXYCODONE [Concomitant]
     Active Substance: OXYCODONE
     Indication: PAIN IN EXTREMITY
     Route: 048
     Dates: start: 20191209, end: 20191209
  46. MAGNESIUM HYDROXIDE. [Concomitant]
     Active Substance: MAGNESIUM HYDROXIDE
     Indication: CONSTIPATION PROPHYLAXIS
     Route: 048
     Dates: start: 20191218, end: 20191218
  47. CYCLOPHOSPHAMIDE. [Suspect]
     Active Substance: CYCLOPHOSPHAMIDE
     Indication: MANTLE CELL LYMPHOMA
     Route: 042
     Dates: start: 20191018, end: 20191018
  48. PANTOPRAZOLE [Concomitant]
     Active Substance: PANTOPRAZOLE
     Indication: NAUSEA
     Route: 048
     Dates: start: 20191113, end: 20191121
  49. MAGNESIUM SULFATE. [Concomitant]
     Active Substance: MAGNESIUM SULFATE
     Route: 042
     Dates: start: 20181212, end: 20181212
  50. MAGNESIUM CHELATE [Concomitant]
     Active Substance: MAGNESIUM
     Dosage: 133 MG TABLET
     Route: 048
     Dates: start: 20191210, end: 20191218
  51. MAGNESIUM CHELATE [Concomitant]
     Active Substance: MAGNESIUM
     Dosage: 133 MG TABLET
     Route: 048
     Dates: start: 20191218, end: 20191228
  52. POTASSIUM CHLORIDE. [Concomitant]
     Active Substance: POTASSIUM CHLORIDE
     Route: 048
     Dates: start: 20191211, end: 20191211
  53. ONDANSETRON [Concomitant]
     Active Substance: ONDANSETRON
     Route: 042
     Dates: start: 20191210, end: 20191210
  54. HYDROMORPHONE [Concomitant]
     Active Substance: HYDROMORPHONE
     Indication: PROPHYLAXIS
     Route: 042
     Dates: start: 20191209, end: 20191209
  55. PANTOPRAZOLE [Concomitant]
     Active Substance: PANTOPRAZOLE
     Route: 048
     Dates: start: 20191126, end: 20191128
  56. PANTOPRAZOLE [Concomitant]
     Active Substance: PANTOPRAZOLE
     Route: 048
     Dates: start: 20191204, end: 20191221
  57. LORAZEPAM. [Concomitant]
     Active Substance: LORAZEPAM
     Indication: PREMEDICATION
     Route: 048
     Dates: start: 20191216, end: 20191227
  58. PARACETAMOL [Concomitant]
     Active Substance: ACETAMINOPHEN
     Indication: ARTHRALGIA
     Route: 042
     Dates: start: 20191209, end: 20191209
  59. LIDOCAINE. [Concomitant]
     Active Substance: LIDOCAINE
     Indication: PROPHYLAXIS
     Route: 042
     Dates: start: 20191209, end: 20191209

REACTIONS (3)
  - Lethargy [Not Recovered/Not Resolved]
  - Cardiac arrest [Fatal]
  - Meningitis cryptococcal [Fatal]

NARRATIVE: CASE EVENT DATE: 20191222
